FAERS Safety Report 6738094-0 (Version None)
Quarter: 2010Q2

REPORT INFORMATION
  Report Type: 
  Country: None (occurrence: None)
  Receive Date: 20100524
  Receipt Date: 20100519
  Transmission Date: 20101027
  Serious: Yes (Life-Threatening)
  Sender: FDA-Public Use
  Company Number: JP-JNJFOC-20100502922

PATIENT
  Sex: Female

DRUGS (5)
  1. LIVOSTIN [Suspect]
     Indication: DRUG USE FOR UNKNOWN INDICATION
     Route: 047
  2. CRAVIT [Suspect]
     Indication: DRUG USE FOR UNKNOWN INDICATION
     Route: 048
  3. FLUMETHOLON [Suspect]
     Indication: DRUG USE FOR UNKNOWN INDICATION
     Route: 031
  4. PREDONINE [Suspect]
     Indication: DRUG USE FOR UNKNOWN INDICATION
     Route: 061
  5. PREDONINE [Concomitant]
     Route: 048

REACTIONS (4)
  - HYPERSENSITIVITY [None]
  - OBSTRUCTIVE AIRWAYS DISORDER [None]
  - RASH GENERALISED [None]
  - SWELLING FACE [None]
